FAERS Safety Report 18073401 (Version 1)
Quarter: 2020Q3

REPORT INFORMATION
  Report Type: Report from Study
  Country: US (occurrence: US)
  Receive Date: 20200727
  Receipt Date: 20200727
  Transmission Date: 20201103
  Serious: Yes (Hospitalization)
  Sender: FDA-Public Use
  Company Number: US-MYLANLABS-2020M1067314

PATIENT
  Age: 8 Year
  Sex: Female

DRUGS (1)
  1. ISOTRETINOIN. [Suspect]
     Active Substance: ISOTRETINOIN
     Indication: NEUROBLASTOMA
     Dosage: 160 MG/M2, QDIN 2 DOSES IN 2 WEEKS ON AND 2 WEEKS OFF; RECEIVED 8 CYCLES..
     Route: 065

REACTIONS (3)
  - Off label use [Unknown]
  - Epiphyses premature fusion [Not Recovered/Not Resolved]
  - Knee deformity [Not Recovered/Not Resolved]
